FAERS Safety Report 4506943-2 (Version None)
Quarter: 2004Q4

REPORT INFORMATION
  Report Type: 
  Country: None (occurrence: None)
  Receive Date: 20041117
  Receipt Date: 20041109
  Transmission Date: 20050328
  Serious: Yes (Disabling)
  Sender: FDA-Public Use
  Company Number: ENTC2004-0215

PATIENT
  Age: 51 Year
  Sex: Male

DRUGS (3)
  1. STAVELO       (LEVODOPA, CARBIDOPA, ENTACAPONE) [Suspect]
     Indication: PARKINSON'S DISEASE
     Dosage: 1 TBL
     Route: 048
     Dates: start: 20040520, end: 20041001
  2. NACOM [Concomitant]
  3. CABASERIL [Concomitant]

REACTIONS (1)
  - RHABDOMYOLYSIS [None]
